FAERS Safety Report 23234381 (Version 1)
Quarter: 2023Q4

REPORT INFORMATION
  Report Type: Spontaneous
  Country: CN (occurrence: CN)
  Receive Date: 20231128
  Receipt Date: 20231128
  Transmission Date: 20240109
  Serious: Yes (Hospitalization)
  Sender: FDA-Public Use
  Company Number: CN-BAYER-2023A170149

PATIENT
  Age: 58 Year
  Sex: Male
  Weight: 62 kg

DRUGS (1)
  1. GLUCOBAY [Suspect]
     Active Substance: ACARBOSE
     Indication: Type 2 diabetes mellitus
     Dosage: 100 MG, TID
     Route: 048
     Dates: start: 20231104, end: 20231105

REACTIONS (1)
  - Abdominal distension [Recovered/Resolved]

NARRATIVE: CASE EVENT DATE: 20231105
